FAERS Safety Report 7969560-8 (Version None)
Quarter: 2011Q4

REPORT INFORMATION
  Report Type: 
  Country: None (occurrence: None)
  Receive Date: 20111212
  Receipt Date: 20111205
  Transmission Date: 20120403
  Serious: Yes (Death, Life-Threatening, Hospitalization)
  Sender: FDA-Public Use
  Company Number: JP-PFIZER INC-2011295789

PATIENT
  Sex: Male
  Weight: 66 kg

DRUGS (25)
  1. DECADRON [Concomitant]
     Indication: PROPHYLAXIS
     Dosage: 8 MG, WEEKLY
     Route: 042
     Dates: start: 20110823, end: 20111025
  2. DEPAS [Concomitant]
     Indication: MENTAL DISORDER
     Dosage: 0.5 MG, 3X/DAY
     Route: 048
     Dates: end: 20111020
  3. MAGNESIUM OXIDE [Concomitant]
     Indication: CONSTIPATION
     Dosage: 330 MG, 3X/DAY
     Route: 048
     Dates: end: 20111020
  4. FENTANYL CITRATE [Concomitant]
     Indication: RENAL CELL CARCINOMA
     Dosage: 2 MG, 1X/DAY
     Route: 062
     Dates: start: 20111022, end: 20111109
  5. OXYCODONE HYDROCHLORIDE [Concomitant]
     Indication: RENAL CELL CARCINOMA
     Dosage: UNK
     Route: 048
  6. PURSENNID [Concomitant]
     Indication: CONSTIPATION
     Dosage: 24 MG, 1X/DAY
     Route: 048
     Dates: start: 20111001, end: 20111020
  7. TEMSIROLIMUS [Suspect]
     Indication: RENAL CELL CARCINOMA
     Dosage: 25 MG, WEEKLY
     Dates: start: 20110823, end: 20111025
  8. POLARAMINE [Concomitant]
     Indication: PROPHYLAXIS
     Dosage: 5 MG, WEEKLY
     Route: 042
     Dates: start: 20110823, end: 20111025
  9. ZOMETA [Concomitant]
     Dosage: 4 MG, 1X/DAY
     Route: 042
     Dates: start: 20110927, end: 20110927
  10. FENTANYL CITRATE [Concomitant]
     Indication: CANCER PAIN
     Dosage: 1 MG, 1X/DAY
     Route: 062
     Dates: end: 20111021
  11. POSTERISAN FORTE [Concomitant]
     Indication: HAEMORRHOIDS
     Dosage: 2 UNK, UNK
     Dates: start: 20110922, end: 20111110
  12. DECADRON [Concomitant]
     Indication: METASTASES TO CENTRAL NERVOUS SYSTEM
     Dosage: 0.5 MG, 1X/DAY
     Route: 048
     Dates: end: 20111020
  13. ZOMETA [Concomitant]
     Indication: HYPERKALAEMIA
     Dosage: 4 MG, 1X/DAY
     Route: 042
     Dates: start: 20110830, end: 20110830
  14. PRIMPERAN TAB [Concomitant]
     Indication: NAUSEA
     Dosage: 5 MG, 3X/DAY
     Route: 048
     Dates: end: 20111020
  15. LOXONIN [Concomitant]
     Indication: CANCER PAIN
     Dosage: 60 MG, 3X/DAY
     Route: 048
     Dates: end: 20111020
  16. LOXONIN [Concomitant]
     Indication: RENAL CELL CARCINOMA
  17. VOLTAREN [Concomitant]
     Indication: RENAL CELL CARCINOMA
     Dosage: 25 UNK, UNK
  18. LANSOPRAZOLE [Concomitant]
     Indication: PROPHYLAXIS AGAINST GASTROINTESTINAL ULCER
     Dosage: 15 MG, 1X/DAY
     Route: 048
     Dates: end: 20111020
  19. ZOMETA [Concomitant]
     Indication: RENAL CELL CARCINOMA
     Dosage: 4 MG, 1X/DAY
     Route: 042
     Dates: start: 20110812, end: 20110812
  20. AZUNOL [Concomitant]
     Indication: DECUBITUS ULCER
     Dosage: UNK
     Route: 062
     Dates: start: 20110920, end: 20111124
  21. ZOMETA [Concomitant]
     Dosage: 4 MG, 1X/DAY
     Route: 042
     Dates: start: 20111012, end: 20111012
  22. ZOMETA [Concomitant]
     Dosage: 4 MG, 1X/DAY
     Route: 042
     Dates: start: 20111108, end: 20111108
  23. OXYCODONE HYDROCHLORIDE [Concomitant]
     Indication: CANCER PAIN
     Dosage: UNK
     Route: 048
     Dates: end: 20111109
  24. VOLTAREN [Concomitant]
     Indication: CANCER PAIN
  25. CHLOMY-P [Concomitant]
     Indication: DECUBITUS ULCER
     Dosage: UNK
     Dates: start: 20110920, end: 20111124

REACTIONS (6)
  - DISEASE PROGRESSION [None]
  - INAPPROPRIATE ANTIDIURETIC HORMONE SECRETION [None]
  - DYSPHAGIA [None]
  - PHARYNGITIS [None]
  - RENAL CELL CARCINOMA [None]
  - HYPONATRAEMIA [None]
